FAERS Safety Report 4721633-9 (Version None)
Quarter: 2005Q3

REPORT INFORMATION
  Report Type: 
  Country: None (occurrence: None)
  Receive Date: 20050721
  Receipt Date: 20050126
  Transmission Date: 20060218
  Serious: Yes (Hospitalization)
  Sender: FDA-Public Use
  Company Number: US-BRISTOL-MYERS SQUIBB COMPANY-12838736

PATIENT
  Age: 83 Year
  Sex: Male
  Weight: 78 kg

DRUGS (2)
  1. COUMADIN [Suspect]
     Indication: COAGULOPATHY
     Dosage: 5 MG DAILY FOR ONLY 6 DAYS = 30 MG/WK
     Route: 048
  2. ALTACE [Concomitant]

REACTIONS (1)
  - ULCER HAEMORRHAGE [None]
